FAERS Safety Report 9386678 (Version 6)
Quarter: 2014Q2

REPORT INFORMATION
  Report Type: Spontaneous
  Country: IE (occurrence: IE)
  Receive Date: 20130708
  Receipt Date: 20140415
  Transmission Date: 20141212
  Serious: Yes (Other)
  Sender: FDA-Public Use
  Company Number: PHFR2013IE003836

PATIENT
  Age: 37 Year
  Sex: Male

DRUGS (11)
  1. CLOZARIL [Suspect]
     Indication: SCHIZOPHRENIA
     Dosage: 100MG TDS AND 175MG NOCTE
     Route: 048
     Dates: start: 20010501
  2. CLOZARIL [Suspect]
     Dosage: 300 MG, UNK
     Route: 048
     Dates: start: 2009
  3. STROVITE [Concomitant]
     Indication: HYPOKALAEMIA
     Dosage: UNK, QD
     Route: 048
  4. PARACETAMOL [Concomitant]
     Indication: PAIN
     Dosage: UNK, QID
     Route: 048
  5. NICOTINE [Concomitant]
     Indication: NEURALGIA
     Dosage: UNK, QD
     Route: 061
  6. LYRICA [Concomitant]
     Indication: NEURALGIA
     Dosage: 1 DF, BID
     Route: 048
  7. LYRICA [Concomitant]
     Indication: PAIN IN EXTREMITY
     Dosage: 375 MG, UNK
     Route: 048
     Dates: start: 2009
  8. XANAX [Concomitant]
     Indication: INSOMNIA
     Dosage: UNK, QD
     Route: 048
  9. ALPRAZOLAM [Concomitant]
     Indication: INSOMNIA
     Dosage: 0.25 MG, QD
     Route: 048
     Dates: start: 20131213
  10. PREGABALIN [Concomitant]
     Dosage: 800 MG, UNK
     Route: 048
     Dates: start: 20131219
  11. IBUPROFEN [Concomitant]
     Dosage: 800 MG, UNK
     Route: 048
     Dates: start: 2009

REACTIONS (7)
  - Colon adenoma [Recovered/Resolved]
  - Haemorrhoids [Unknown]
  - Intestinal polyp [Unknown]
  - Large intestine polyp [Unknown]
  - Pain in extremity [Unknown]
  - Pyrexia [Recovered/Resolved]
  - Diarrhoea [Recovered/Resolved]
